FAERS Safety Report 4500450-9 (Version None)
Quarter: 2004Q3

REPORT INFORMATION
  Report Type: 
  Country: None (occurrence: None)
  Receive Date: 20040928
  Receipt Date: 20040726
  Transmission Date: 20050211
  Serious: No
  Sender: FDA-Public Use
  Company Number: 04P-163-0268224-00

PATIENT
  Age: 59 Year
  Sex: Female

DRUGS (8)
  1. HUMIRA [Suspect]
     Indication: RHEUMATOID ARTHRITIS
     Dosage: 40 MG, 1 IN 2 WK, SUBCUTANEOUS
     Route: 058
     Dates: start: 20040401
  2. TRAMADOL HCL [Concomitant]
  3. QUINAPRIL HYDROCHLORIDE [Concomitant]
  4. PIROXICAM [Concomitant]
  5. RANITIDINE HYDROCHLORIDE [Concomitant]
  6. METOPROLOL TARTRATE [Concomitant]
  7. PREDNISONE [Concomitant]
  8. OXYBUTYNIN [Concomitant]

REACTIONS (1)
  - SINUSITIS [None]
